FAERS Safety Report 4579265-1 (Version None)
Quarter: 2005Q1

REPORT INFORMATION
  Report Type: 
  Country: None (occurrence: None)
  Receive Date: 20050209
  Receipt Date: 20050209
  Transmission Date: 20050727
  Serious: No
  Sender: FDA-Public Use
  Company Number: None

PATIENT
  Age: 70 Year
  Sex: Male
  Weight: 83.9154 kg

DRUGS (6)
  1. ENBREL [Suspect]
     Indication: RHEUMATOID ARTHRITIS
     Dosage: 25 MG INJ 2X WK
     Dates: start: 20001020
  2. PREDNISONE [Concomitant]
  3. INSPRA [Concomitant]
  4. ATENOLOL [Concomitant]
  5. COZAAR [Concomitant]
  6. ALPHAGAN [Concomitant]

REACTIONS (1)
  - ARTHRALGIA [None]
